FAERS Safety Report 22524594 (Version 1)
Quarter: 2023Q2

REPORT INFORMATION
  Report Type: Report from Study
  Country: ES (occurrence: ES)
  Receive Date: 20230606
  Receipt Date: 20230606
  Transmission Date: 20230721
  Serious: Yes (Life-Threatening, Hospitalization, Other)
  Sender: FDA-Public Use
  Company Number: ES-ABBVIE-5277579

PATIENT
  Age: 73 Year
  Sex: Male

DRUGS (19)
  1. RISANKIZUMAB [Suspect]
     Active Substance: RISANKIZUMAB
     Indication: Psoriasis
     Route: 058
     Dates: start: 20211130, end: 20211228
  2. RISANKIZUMAB [Suspect]
     Active Substance: RISANKIZUMAB
     Route: 058
     Dates: start: 20211228
  3. METFORMIN [Concomitant]
     Active Substance: METFORMIN HYDROCHLORIDE
     Indication: Diabetes mellitus
     Dosage: FREQUENCY TEXT: EACH 12 HOURS
     Dates: start: 20210520
  4. UMECLIDINIUM BROMIDE [Concomitant]
     Active Substance: UMECLIDINIUM BROMIDE
     Indication: Bronchitis chronic
     Dosage: FREQUENCY TEXT: EACH DAY
     Route: 055
     Dates: start: 20210425
  5. LORAZEPAM [Concomitant]
     Active Substance: LORAZEPAM
     Indication: Depression
     Dosage: FREQUENCY TEXT: EACH DAY
     Route: 048
     Dates: start: 20210509
  6. OMEPRAZOLE [Concomitant]
     Active Substance: OMEPRAZOLE
     Indication: Osteoarthritis
     Dosage: FREQUENCY TEXT: EACH DAY
     Route: 048
     Dates: start: 20210504
  7. OLMESARTAN [Concomitant]
     Active Substance: OLMESARTAN
     Indication: Hypertension
     Dosage: FREQUENCY TEXT: EACH DAY
     Route: 048
     Dates: start: 20150604
  8. MELOXICAM [Concomitant]
     Active Substance: MELOXICAM
     Indication: Psoriatic arthropathy
     Dosage: FREQUENCY TEXT: EACH DAY
     Route: 048
     Dates: start: 20160928
  9. MIRTAZAPINE [Concomitant]
     Active Substance: MIRTAZAPINE
     Indication: Depression
     Dosage: FREQUENCY TEXT: EACH DAY
     Route: 048
     Dates: start: 20220311
  10. RIFAMPIN [Concomitant]
     Active Substance: RIFAMPIN
     Indication: Tuberculosis
     Dosage: FREQUENCY TEXT: EACH DAY
     Route: 048
     Dates: start: 20220318, end: 20220726
  11. BISOPROLOL [Concomitant]
     Active Substance: BISOPROLOL
     Indication: Hypertension
     Dosage: FREQUENCY TEXT: EACH DAY
     Route: 048
     Dates: start: 20210508
  12. FUROSEMIDE [Concomitant]
     Active Substance: FUROSEMIDE
     Indication: Hypertension
     Dosage: FREQUENCY TEXT: EACH DAY
     Route: 048
     Dates: start: 20210316
  13. APIXABAN [Concomitant]
     Active Substance: APIXABAN
     Indication: Atrial fibrillation
     Dosage: FREQUENCY TEXT: EACH 12 HOURS
     Route: 048
     Dates: start: 20190718
  14. ACETAMINOPHEN [Concomitant]
     Active Substance: ACETAMINOPHEN
     Indication: Arthralgia
     Dosage: FREQUENCY TEXT: EACH DAY
     Route: 048
     Dates: start: 20210523
  15. ALBUTEROL [Concomitant]
     Active Substance: ALBUTEROL
     Indication: Bronchitis chronic
     Dosage: FREQUENCY TEXT: EACH DAY
     Route: 055
     Dates: start: 20210429
  16. FERROUS SULFATE ANHYDROUS [Concomitant]
     Active Substance: FERROUS SULFATE ANHYDROUS
     Indication: Anaemia
     Dosage: FREQUENCY TEXT: EACH DAY
     Route: 048
     Dates: start: 20220914
  17. ATORVASTATIN [Concomitant]
     Active Substance: ATORVASTATIN
     Indication: Dyslipidaemia
     Dosage: FREQUENCY TEXT: EACH DAY
     Route: 048
     Dates: start: 20150602
  18. DAPAGLIFLOZIN [Concomitant]
     Active Substance: DAPAGLIFLOZIN
     Indication: Diabetes mellitus
     Dosage: FREQUENCY TEXT: EACH 12 HOURS
     Route: 048
     Dates: start: 20210520
  19. VILANTEROL [Concomitant]
     Active Substance: VILANTEROL
     Indication: Bronchitis chronic
     Dosage: FREQUENCY TEXT: EACH DAY

REACTIONS (1)
  - Cerebrovascular accident [Recovered/Resolved]

NARRATIVE: CASE EVENT DATE: 20230315
